FAERS Safety Report 22940519 (Version 6)
Quarter: 2024Q1

REPORT INFORMATION
  Report Type: Spontaneous
  Country: CA (occurrence: CA)
  Receive Date: 20230913
  Receipt Date: 20240313
  Transmission Date: 20240410
  Serious: No
  Sender: FDA-Public Use
  Company Number: CA-PFIZER INC-202300243329

PATIENT
  Age: 38 Year
  Sex: Male

DRUGS (4)
  1. GENOTROPIN [Suspect]
     Active Substance: SOMATROPIN
     Indication: Growth hormone deficiency
     Dosage: 0.5 MG (1 DF), DAILY (7 TIMES IN A WEEK)
     Route: 058
  2. GENOTROPIN [Suspect]
     Active Substance: SOMATROPIN
     Dosage: 0.5 MG (1 DF), DAILY (7 TIMES IN A WEEK)
     Route: 058
     Dates: start: 2023
  3. GENOTROPIN [Suspect]
     Active Substance: SOMATROPIN
     Dosage: 0.4 MG (1 DF), DAILY (7 TIMES IN A WEEK)
     Route: 058
     Dates: start: 202302
  4. CIPRALEX [Concomitant]
     Active Substance: ESCITALOPRAM OXALATE
     Dosage: UNK

REACTIONS (2)
  - Insulin-like growth factor increased [Not Recovered/Not Resolved]
  - Product impurity [Unknown]

NARRATIVE: CASE EVENT DATE: 20230101
